FAERS Safety Report 10510567 (Version 1)
Quarter: 2014Q4

REPORT INFORMATION
  Report Type: Spontaneous
  Country: US (occurrence: None)
  Receive Date: 20141008
  Receipt Date: 20141008
  Transmission Date: 20150528
  Serious: Yes (Hospitalization)
  Sender: FDA-Public Use
  Company Number: 2014-US-012096

PATIENT
  Age: 47 Year
  Sex: Female

DRUGS (3)
  1. NIMODIPINE (NIMODIPINE) [Concomitant]
  2. CORTEF (HYDROCORTISONE) [Concomitant]
  3. XYREM [Suspect]
     Active Substance: SODIUM OXYBATE
     Indication: SLEEP DISORDER
     Route: 048
     Dates: start: 200911

REACTIONS (3)
  - Pulmonary embolism [None]
  - Off label use [None]
  - Heart rate increased [None]

NARRATIVE: CASE EVENT DATE: 20140912
